FAERS Safety Report 13919833 (Version 1)
Quarter: 2017Q3

REPORT INFORMATION
  Report Type: Spontaneous
  Country: US (occurrence: US)
  Receive Date: 20170830
  Receipt Date: 20170830
  Transmission Date: 20171127
  Serious: No
  Sender: FDA-Public Use
  Company Number: US-BECTON DICKINSON-2017BDN00097

PATIENT
  Age: 69 Year
  Sex: Female
  Weight: 66.67 kg

DRUGS (3)
  1. CHLORHEXIDINE-ALCOHOL [Suspect]
     Active Substance: ALCOHOL\CHLORHEXIDINE GLUCONATE
     Dosage: UNK
     Dates: start: 20170216, end: 20170216
  2. REMODULIN [Concomitant]
     Active Substance: TREPROSTINIL
     Dosage: 0.040 ?G/KG, UNK
     Route: 042
     Dates: start: 20150811
  3. WARFARIN [Concomitant]
     Active Substance: WARFARIN

REACTIONS (1)
  - Dermatitis contact [Recovered/Resolved]

NARRATIVE: CASE EVENT DATE: 20170216
